FAERS Safety Report 7450750-8 (Version None)
Quarter: 2011Q2

REPORT INFORMATION
  Report Type: 
  Country: None (occurrence: None)
  Receive Date: 20110429
  Receipt Date: 20110429
  Transmission Date: 20111010
  Serious: Yes (Other)
  Sender: FDA-Public Use
  Company Number: None

PATIENT
  Sex: Female
  Weight: 86.1834 kg

DRUGS (2)
  1. CHERACOL 5MM [Suspect]
     Indication: COUGH
     Dosage: CHERACOL QID PO 04/11 - 4/13
     Route: 048
  2. AMOXICILLIN [Suspect]
     Indication: BACTERIAL INFECTION
     Dosage: AMOXICILLIN BID PO 4/11 - CONTINUE
     Route: 048

REACTIONS (6)
  - RETCHING [None]
  - VOMITING [None]
  - GALLBLADDER DISORDER [None]
  - ABDOMINAL PAIN UPPER [None]
  - GASTROINTESTINAL PAIN [None]
  - DIARRHOEA [None]
